FAERS Safety Report 10691503 (Version 3)
Quarter: 2015Q1

REPORT INFORMATION
  Report Type: Spontaneous
  Country: US (occurrence: US)
  Receive Date: 20150105
  Receipt Date: 20150313
  Transmission Date: 20150720
  Serious: Yes (Other)
  Sender: FDA-Public Use
  Company Number: US-PFIZER INC-2014363263

PATIENT
  Age: 86 Year
  Sex: Female
  Weight: 81 kg

DRUGS (11)
  1. ICAPS [Concomitant]
     Active Substance: MINERALS\VITAMINS
     Indication: OPEN ANGLE GLAUCOMA
     Dosage: 2 DF, DAILY
     Dates: start: 2005
  2. LASIX [Concomitant]
     Active Substance: FUROSEMIDE
     Dosage: 20 MG, ALTERNATE DAY
     Dates: start: 2005
  3. KLOR-CON [Concomitant]
     Active Substance: POTASSIUM CHLORIDE
     Dosage: 10 MG, ALTERNATE DAY
     Dates: start: 2005
  4. XALATAN [Suspect]
     Active Substance: LATANOPROST
     Indication: OPEN ANGLE GLAUCOMA
     Dosage: 1 GTT IN EACH EYE, DAILY
     Route: 047
     Dates: start: 2005
  5. AZOPT [Concomitant]
     Active Substance: BRINZOLAMIDE
     Indication: OPEN ANGLE GLAUCOMA
     Dosage: 1 DROP IN BOTH EYES, 2X/DAY
     Dates: start: 2005
  6. NORVASC [Concomitant]
     Active Substance: AMLODIPINE BESYLATE
     Indication: HYPERTENSION
     Dosage: 5 MG, DAILY
     Dates: start: 1995
  7. BABY ASPIRIN [Concomitant]
     Active Substance: ASPIRIN
     Dosage: 81 MG, ALTERNATE DAY
     Dates: start: 1997
  8. XALATAN [Suspect]
     Active Substance: LATANOPROST
     Dosage: UNK, 2X/DAY
     Dates: start: 2005
  9. XALATAN [Suspect]
     Active Substance: LATANOPROST
     Dosage: UNK
  10. BRIMODIN /00082801/ [Concomitant]
     Indication: OPEN ANGLE GLAUCOMA
     Dosage: 1 DROP IN BOTH EYES, 2X/DAY
     Dates: start: 2005
  11. SYSTANE (HYPROMELLOSE 2910 (4000 MPA.S)) [Concomitant]
     Active Substance: HYPROMELLOSE 2910 (4000 MPA.S)
     Indication: DRY EYE
     Dosage: UNK
     Dates: start: 2005

REACTIONS (8)
  - Eye haemorrhage [Not Recovered/Not Resolved]
  - Ocular hyperaemia [Not Recovered/Not Resolved]
  - Product packaging issue [Unknown]
  - Intentional product misuse [Unknown]
  - Drug prescribing error [Unknown]
  - Dry eye [Not Recovered/Not Resolved]
  - Product quality issue [Unknown]
  - Drug ineffective [Not Recovered/Not Resolved]

NARRATIVE: CASE EVENT DATE: 201407
